FAERS Safety Report 18055896 (Version 4)
Quarter: 2020Q3

REPORT INFORMATION
  Report Type: Report from Study
  Country: US (occurrence: US)
  Receive Date: 20200722
  Receipt Date: 20200814
  Transmission Date: 20201103
  Serious: Yes (Hospitalization)
  Sender: FDA-Public Use
  Company Number: US-ACTELION-A-US2020-207383

PATIENT
  Age: 9 Year
  Sex: Male

DRUGS (6)
  1. OPSUMIT [Suspect]
     Active Substance: MACITENTAN
     Indication: PULMONARY ARTERIAL HYPERTENSION
     Dosage: 10 MG, QD
     Route: 048
     Dates: start: 20200129
  2. OPSUMIT [Suspect]
     Active Substance: MACITENTAN
     Dosage: 20 MG, QD
     Route: 048
     Dates: start: 20200210, end: 202007
  3. UPTRAVI [Suspect]
     Active Substance: SELEXIPAG
     Indication: PULMONARY ARTERIAL HYPERTENSION
     Dosage: 200 MCG, BID
     Route: 048
     Dates: start: 20200708
  4. SILDENAFIL. [Concomitant]
     Active Substance: SILDENAFIL
     Dosage: 20 MG, TID
     Dates: start: 20191205
  5. KEPPRA [Concomitant]
     Active Substance: LEVETIRACETAM
     Dosage: 500 MG, QD
     Dates: start: 201910
  6. DIGOXIN. [Concomitant]
     Active Substance: DIGOXIN
     Dosage: 2.5 MG, BID

REACTIONS (7)
  - Chest discomfort [Unknown]
  - Aggression [Unknown]
  - Chest pain [Unknown]
  - Hospitalisation [Not Recovered/Not Resolved]
  - Generalised tonic-clonic seizure [Unknown]
  - Cardiac arrest [Unknown]
  - Agitation [Unknown]

NARRATIVE: CASE EVENT DATE: 202007
